FAERS Safety Report 8768603 (Version 3)
Quarter: 2012Q4

REPORT INFORMATION
  Report Type: Report from Study
  Country: US (occurrence: US)
  Receive Date: 20120904
  Receipt Date: 20121004
  Transmission Date: 20130627
  Serious: Yes (Hospitalization)
  Sender: FDA-Public Use
  Company Number: US-009507513-1203USA03348

PATIENT

DRUGS (24)
  1. HEXADROL TABLETS [Suspect]
     Dosage: 20 mg, qd
     Route: 048
     Dates: start: 20111031
  2. BORTEZOMIB [Suspect]
     Indication: MYELOMA RECURRENCE
     Dosage: 1.3 mg/m2, qd
     Dates: start: 20120221
  3. BORTEZOMIB [Suspect]
     Indication: MULTIPLE MYELOMA
     Dosage: 0.7 mg/m2, UNK
  4. STUDY DRUG (UNSPECIFIED) [Suspect]
     Indication: MYELOMA RECURRENCE
     Dosage: 100 mg, qd
     Route: 042
     Dates: start: 20111031
  5. STUDY DRUG (UNSPECIFIED) [Suspect]
     Indication: MULTIPLE MYELOMA
  6. ACETAMINOPHEN [Concomitant]
  7. ACYCLOVIR [Concomitant]
  8. AREDIA [Concomitant]
  9. ASPIRIN [Concomitant]
  10. ATIVAN [Concomitant]
  11. AMOXICILLIN\CLAVULANATE POTASSIUM [Concomitant]
  12. HYDROCHLOROTHIAZIDE [Concomitant]
  13. FOLIC ACID [Concomitant]
  14. LYRICA [Concomitant]
  15. OMEPRAZOLE [Concomitant]
  16. OXYCODONE [Concomitant]
  17. POTASSIUM CITRATE [Concomitant]
  18. Z-PAK [Concomitant]
  19. CITRACAL [Concomitant]
  20. CYANOCOBALAMIN [Concomitant]
  21. OMEGA-3 MARINE TRIGLYCERIDES [Concomitant]
  22. GLUCOSAMINE [Concomitant]
  23. THIAMINE [Concomitant]
  24. CHOLECALCIFEROL [Concomitant]

REACTIONS (1)
  - Pneumonia [Recovered/Resolved]
